FAERS Safety Report 6338259-6 (Version None)
Quarter: 2009Q3

REPORT INFORMATION
  Report Type: 
  Country: None (occurrence: None)
  Receive Date: 20090902
  Receipt Date: 20090831
  Transmission Date: 20100115
  Serious: Yes (Death, Hospitalization, Other)
  Sender: FDA-Public Use
  Company Number: US-ROXANE LABORATORIES, INC.-2009-RO-00882RO

PATIENT
  Age: 40 Year
  Sex: Male

DRUGS (9)
  1. TOPIRAMATE [Suspect]
     Indication: WEIGHT CONTROL
     Dosage: 200 MG
  2. TOPIRAMATE [Suspect]
     Indication: PROPHYLAXIS
  3. CITALOPRAM HYDROBROMIDE [Suspect]
     Indication: DEPRESSED MOOD
  4. CLOZAPINE [Suspect]
     Indication: SCHIZOPHRENIA
     Dosage: 700 MG
  5. CLOZAPINE [Suspect]
     Dosage: 800 MG
  6. ERYTHROMYCIN [Suspect]
     Indication: WHITE BLOOD CELL COUNT INCREASED
  7. ERYTHROMYCIN [Suspect]
     Indication: PRODUCTIVE COUGH
  8. AZITHROMYCIN [Suspect]
     Indication: WHITE BLOOD CELL COUNT INCREASED
  9. AZITHROMYCIN [Suspect]
     Indication: PRODUCTIVE COUGH

REACTIONS (9)
  - BLOOD GLUCOSE INCREASED [None]
  - CARDIOMEGALY [None]
  - CONGESTIVE CARDIOMYOPATHY [None]
  - CONVULSION [None]
  - DEPRESSED MOOD [None]
  - ELECTROENCEPHALOGRAM ABNORMAL [None]
  - PRODUCTIVE COUGH [None]
  - SINUS ARRHYTHMIA [None]
  - WHITE BLOOD CELL COUNT INCREASED [None]
